FAERS Safety Report 16917697 (Version 2)
Quarter: 2020Q1

REPORT INFORMATION
  Report Type: Spontaneous
  Country: GB (occurrence: GB)
  Receive Date: 20191015
  Receipt Date: 20200310
  Transmission Date: 20200409
  Serious: Yes (Hospitalization, Disabling)
  Sender: FDA-Public Use
  Company Number: GB-TEVA-2019-GB-1120745

PATIENT
  Age: 28 Year
  Sex: Female
  Weight: 80 kg

DRUGS (7)
  1. TOPIRAMATE. [Suspect]
     Active Substance: TOPIRAMATE
     Route: 048
     Dates: start: 20170404
  2. FROVATRIPTAN. [Concomitant]
     Active Substance: FROVATRIPTAN
  3. VENTOLIN [Concomitant]
     Active Substance: ALBUTEROL SULFATE
  4. PARACETAMOL COATED 90% [Concomitant]
  5. TOPIRAMATE. [Suspect]
     Active Substance: TOPIRAMATE
     Indication: VESTIBULAR MIGRAINE
     Dosage: 100 MILLIGRAM
  6. SERTRALINE HYDROCHLORIDE. [Concomitant]
     Active Substance: SERTRALINE HYDROCHLORIDE
  7. SALBUTAMOL MICRONIZED [Concomitant]

REACTIONS (9)
  - Fatigue [Recovering/Resolving]
  - Loss of consciousness [Recovering/Resolving]
  - Withdrawal syndrome [Unknown]
  - Asthenia [Recovering/Resolving]
  - Seizure [Recovered/Resolved with Sequelae]
  - Extrasystoles [Recovering/Resolving]
  - Heart rate irregular [Recovering/Resolving]
  - Pulse abnormal [Recovering/Resolving]
  - Dizziness [Recovering/Resolving]

NARRATIVE: CASE EVENT DATE: 20190709
